FAERS Safety Report 23629051 (Version 1)
Quarter: 2024Q1

REPORT INFORMATION
  Report Type: Spontaneous
  Country: US (occurrence: US)
  Receive Date: 20240313
  Receipt Date: 20240313
  Transmission Date: 20240410
  Serious: No
  Sender: FDA-Public Use
  Company Number: US-SA-SAC20240308000364

PATIENT
  Sex: Male

DRUGS (1)
  1. DUPIXENT [Suspect]
     Active Substance: DUPILUMAB
     Indication: Dermatitis atopic
     Dosage: 200 MG, QOW
     Route: 058
     Dates: start: 20210720

REACTIONS (5)
  - Pyrexia [Recovering/Resolving]
  - Seasonal allergy [Unknown]
  - Condition aggravated [Unknown]
  - Skin papilloma [Unknown]
  - Product use in unapproved indication [Unknown]
